FAERS Safety Report 9904162 (Version 1)
Quarter: 2014Q1

REPORT INFORMATION
  Report Type: Spontaneous
  Country: US (occurrence: US)
  Receive Date: 20140218
  Receipt Date: 20140218
  Transmission Date: 20141002
  Serious: No
  Sender: FDA-Public Use
  Company Number: US-BIOGENIDEC-2014BI013778

PATIENT
  Age: 61 Year
  Sex: Female

DRUGS (9)
  1. TECFIDERA [Suspect]
     Indication: MULTIPLE SCLEROSIS
     Route: 048
     Dates: start: 20140127
  2. HUMALOG KWIKPEN [Concomitant]
     Dates: start: 20140112
  3. LANTUS SOLAR STAR PEN [Concomitant]
     Dates: start: 20140112
  4. VICODIN [Concomitant]
     Dates: start: 20131119
  5. NOVOLOG 70/30 FLEXPEN [Concomitant]
     Dates: start: 20130715
  6. LISINOPRIL [Concomitant]
  7. SERTRALINE [Concomitant]
  8. GABAPENTIN [Concomitant]
  9. VITAMIN D [Concomitant]

REACTIONS (4)
  - Pain [Unknown]
  - Fatigue [Unknown]
  - Depression [Unknown]
  - Dyspepsia [Unknown]
